FAERS Safety Report 8277604-1 (Version None)
Quarter: 2012Q2

REPORT INFORMATION
  Report Type: 
  Country: None (occurrence: None)
  Receive Date: 20120412
  Receipt Date: 20120405
  Transmission Date: 20120825
  Serious: Yes (Death, Life-Threatening)
  Sender: FDA-Public Use
  Company Number: FR-PFIZER INC-2012020612

PATIENT
  Age: 90 Year
  Sex: Female

DRUGS (11)
  1. CEFTRIAXONE [Suspect]
     Dosage: 1 G, DAILY
     Route: 058
     Dates: start: 20120106, end: 20120108
  2. OFLOXACIN [Suspect]
     Indication: URINARY TRACT INFECTION
     Dosage: 400 MG, DAILY
     Route: 048
     Dates: start: 20111222, end: 20111227
  3. PANTOPRAZOLE [Suspect]
     Dosage: 20 MG, DAILY
     Route: 048
     Dates: start: 20120102, end: 20120109
  4. PAROXETINE HYDROCHLORIDE [Concomitant]
     Dosage: UNK
     Dates: start: 20120102
  5. ATORVASTATIN [Concomitant]
     Dosage: UNK
     Dates: start: 20111222
  6. LASIX [Concomitant]
     Dosage: UNK
     Dates: start: 20111222
  7. ACETAMINOPHEN [Concomitant]
     Dosage: UNK
     Dates: start: 20120102
  8. LOVENOX [Suspect]
     Dosage: 1 DF, DAILY
     Route: 058
     Dates: start: 20120102, end: 20120109
  9. ASPEGIC 1000 [Suspect]
     Dosage: UNK
     Route: 048
     Dates: start: 20120102, end: 20120109
  10. METFORMIN HCL [Concomitant]
     Dosage: UNK
  11. ARIMIDEX [Concomitant]
     Dosage: UNK

REACTIONS (3)
  - CARDIOMYOPATHY [None]
  - RENAL FAILURE ACUTE [None]
  - THROMBOCYTOPENIA [None]
